FAERS Safety Report 5395140-7 (Version None)
Quarter: 2007Q3

REPORT INFORMATION
  Report Type: 
  Country: None (occurrence: None)
  Receive Date: 20070724
  Receipt Date: 20070718
  Transmission Date: 20080115
  Serious: Yes (Hospitalization, Other)
  Sender: FDA-Public Use
  Company Number: US-BAYER-200616618BWH

PATIENT
  Age: 75 Year
  Sex: Male
  Weight: 68 kg

DRUGS (19)
  1. NEXAVAR [Suspect]
     Indication: MALIGNANT MELANOMA
     Dosage: TOTAL DAILY DOSE: 400 MG  UNIT DOSE: 200 MG
     Route: 048
     Dates: start: 20061026
  2. NEXAVAR [Suspect]
     Dosage: TOTAL DAILY DOSE: 800 MG  UNIT DOSE: 200 MG
     Route: 048
     Dates: start: 20060915
  3. NEXAVAR [Suspect]
     Dosage: TOTAL DAILY DOSE: 800 MG  UNIT DOSE: 200 MG
     Route: 048
     Dates: start: 20060619, end: 20060816
  4. CARBOPLATIN [Suspect]
     Dates: start: 20060619
  5. TAXOL [Suspect]
     Dates: start: 20060619
  6. LEXAPRO [Concomitant]
     Indication: ANXIETY
  7. LISINOPRIL [Concomitant]
     Indication: BLOOD PRESSURE ABNORMAL
  8. ZOCOR [Concomitant]
     Indication: BLOOD CHOLESTEROL ABNORMAL
  9. TYLENOL III [Concomitant]
  10. MULTI-VITAMIN [Concomitant]
  11. SELENIUM SULFIDE [Concomitant]
  12. FOLIC ACID [Concomitant]
  13. SENNA [Concomitant]
  14. STOOL SOFTENER [Concomitant]
  15. CALCIUM CHLORIDE [Concomitant]
  16. B6 [Concomitant]
     Dosage: TOTAL DAILY DOSE: 200 MG  UNIT DOSE: 100 MG
  17. VITAMIN E [Concomitant]
  18. ASCORBIC ACID [Concomitant]
  19. MELATONIN [Concomitant]

REACTIONS (7)
  - FLUSHING [None]
  - PAIN [None]
  - PARAESTHESIA [None]
  - PRURITUS [None]
  - RASH [None]
  - THROMBOSIS [None]
  - VOMITING [None]
